FAERS Safety Report 5329075-2 (Version None)
Quarter: 2007Q2

REPORT INFORMATION
  Report Type: 
  Country: None (occurrence: None)
  Receive Date: 20070518
  Receipt Date: 20070507
  Transmission Date: 20071010
  Serious: Yes (Hospitalization, Other)
  Sender: FDA-Public Use
  Company Number: US-PFIZER INC-2006138059

PATIENT
  Sex: Female
  Weight: 65.8 kg

DRUGS (3)
  1. CELEBREX [Suspect]
     Indication: MYALGIA
     Route: 048
  2. CELEBREX [Suspect]
     Indication: BACK PAIN
  3. BEXTRA [Suspect]
     Indication: BACK PAIN
     Dates: start: 20021101, end: 20030401

REACTIONS (5)
  - ANXIETY [None]
  - CARDIAC ARREST [None]
  - CARDIAC FAILURE CONGESTIVE [None]
  - CEREBROVASCULAR ACCIDENT [None]
  - DEPRESSION [None]
